FAERS Safety Report 7897147-4 (Version None)
Quarter: 2011Q4

REPORT INFORMATION
  Report Type: 
  Country: None (occurrence: None)
  Receive Date: 20111107
  Receipt Date: 20111028
  Transmission Date: 20120403
  Serious: Yes (Life-Threatening, Hospitalization)
  Sender: FDA-Public Use
  Company Number: GB-JNJFOC-20111012599

PATIENT
  Age: 64 Year
  Sex: Female
  Weight: 100 kg

DRUGS (8)
  1. GABAPENTIN [Interacting]
     Indication: PAIN
     Route: 065
     Dates: start: 20110601
  2. FENTANYL [Suspect]
     Indication: PAIN IN EXTREMITY
     Route: 062
     Dates: start: 20110615
  3. FENTANYL [Suspect]
     Route: 062
  4. FENTANYL [Suspect]
     Route: 062
  5. GLICLAZIDE [Concomitant]
     Indication: PRODUCT USED FOR UNKNOWN INDICATION
     Route: 065
  6. GABAPENTIN [Interacting]
     Route: 065
     Dates: start: 20110104, end: 20110601
  7. GABAPENTIN [Interacting]
     Route: 065
  8. GABAPENTIN [Interacting]
     Route: 065

REACTIONS (4)
  - RESPIRATORY ARREST [None]
  - DRUG INTERACTION [None]
  - HYPOVENTILATION [None]
  - SOMNOLENCE [None]
